FAERS Safety Report 13479758 (Version 1)
Quarter: 2020Q3

REPORT INFORMATION
  Report Type: Report from Study
  Country: US (occurrence: US)
  Receive Date: 20170424
  Receipt Date: 20170424
  Transmission Date: 20201105
  Serious: Yes (Hospitalization)
  Sender: FDA-Public Use
  Company Number: US-BAXALTA-2017BLT003166

PATIENT
  Age: 13 Year
  Sex: Male
  Weight: 49.5 kg

DRUGS (4)
  1. EMICIZUMAB. [Suspect]
     Active Substance: EMICIZUMAB
     Indication: FACTOR VIII DEFICIENCY
     Dosage: LAST DOSE 0.5 ML, 1.5 MG/KG, 1X A WEEK
     Route: 058
     Dates: start: 20160224
  2. FEIBA [Suspect]
     Active Substance: ANTI-INHIBITOR COAGULANT COMPLEX
     Dosage: 2 DOSAGE FORMS, UNK
     Route: 065
     Dates: start: 20160930, end: 20160930
  3. FEIBA [Suspect]
     Active Substance: ANTI-INHIBITOR COAGULANT COMPLEX
     Indication: PROPHYLAXIS
     Dosage: 3651 IU (73 U/KG), UNK
     Route: 065
     Dates: start: 20160928, end: 20160928
  4. FEIBA [Suspect]
     Active Substance: ANTI-INHIBITOR COAGULANT COMPLEX
     Dosage: 2 DOSAGE FORMS, UNK
     Route: 065
     Dates: start: 20160929, end: 20160929

REACTIONS (1)
  - Thrombotic microangiopathy [Recovered/Resolved]

NARRATIVE: CASE EVENT DATE: 20161002
